FAERS Safety Report 16263925 (Version 1)
Quarter: 2019Q2

REPORT INFORMATION
  Report Type: Spontaneous
  Country: US (occurrence: US)
  Receive Date: 20190328
  Receipt Date: 20190328
  Transmission Date: 20190711
  Serious: No
  Sender: FDA-Public Use
  Company Number: None

PATIENT

DRUGS (2)
  1. TRIHEXYPHENIDYL 5MG [Suspect]
     Active Substance: TRIHEXYPHENIDYL
  2. TAMOXIFEN 20MG [Suspect]
     Active Substance: TAMOXIFEN

REACTIONS (1)
  - Product dispensing error [None]

NARRATIVE: CASE EVENT DATE: 2018
